FAERS Safety Report 12508696 (Version 9)
Quarter: 2018Q4

REPORT INFORMATION
  Report Type: Spontaneous
  Country: IT (occurrence: IT)
  Receive Date: 20160629
  Receipt Date: 20181114
  Transmission Date: 20190204
  Serious: Yes (Death, Hospitalization, Other)
  Sender: FDA-Public Use
  Company Number: IT-PFIZER INC-2016316960

PATIENT
  Age: 82 Year
  Sex: Female

DRUGS (10)
  1. VANCOMYCIN [Concomitant]
     Active Substance: VANCOMYCIN
     Indication: STAPHYLOCOCCAL INFECTION
     Dosage: 1 G, LOADING DOSE
  2. RIFAMPICIN [Concomitant]
     Active Substance: RIFAMPIN
     Indication: STAPHYLOCOCCAL INFECTION
     Dosage: 300 MG, DAILY
  3. VANCOMYCIN [Concomitant]
     Active Substance: VANCOMYCIN
     Dosage: 500 MG, UP TO AT THE END OF DIALYSIS
  4. FENTANYL. [Suspect]
     Active Substance: FENTANYL
     Indication: PROCEDURAL PAIN
     Dosage: 100 MCG 1 TABLET TO BE INCREASED, AS NEEDED
     Route: 048
  5. LEVOFLOXACIN. [Concomitant]
     Active Substance: LEVOFLOXACIN
     Dosage: 125 MG, DAILY AS MAINTENANCE
     Route: 048
  6. VANCOMYCIN [Concomitant]
     Active Substance: VANCOMYCIN
     Indication: STAPHYLOCOCCAL INFECTION
     Dosage: BY A SWAB APPLIED TO A LEFT FOOT
     Route: 061
     Dates: start: 2015
  7. FENTANYL. [Suspect]
     Active Substance: FENTANYL
     Dosage: 200 UG, AS NEEDED
     Route: 048
  8. FENTANYL. [Suspect]
     Active Substance: FENTANYL
     Indication: ISCHAEMIC LIMB PAIN
     Dosage: 12 UG 1 HOUR
     Route: 062
     Dates: start: 20150521, end: 20150528
  9. FENTANYL. [Suspect]
     Active Substance: FENTANYL
     Dosage: 25 UG, 1 HOUR
     Route: 062
     Dates: start: 20150528, end: 20150602
  10. LEVOFLOXACIN. [Concomitant]
     Active Substance: LEVOFLOXACIN
     Indication: STAPHYLOCOCCAL INFECTION
     Dosage: 500 MG, LOADING DOSE
     Route: 048

REACTIONS (2)
  - Toxicity to various agents [Unknown]
  - Status epilepticus [Recovered/Resolved]

NARRATIVE: CASE EVENT DATE: 2015
